FAERS Safety Report 4315853-5 (Version None)
Quarter: 2004Q1

REPORT INFORMATION
  Report Type: 
  Country: None (occurrence: None)
  Receive Date: 20040310
  Receipt Date: 20040304
  Transmission Date: 20041129
  Serious: No
  Sender: FDA-Public Use
  Company Number: 2004CG00471

PATIENT
  Age: 63 Year
  Sex: Female

DRUGS (2)
  1. NOLVADEX [Suspect]
     Indication: BREAST CANCER
     Dosage: 20 MG DAILY PO
     Route: 048
     Dates: start: 19990101
  2. NON-STERIODS ANTI-INFLAMMATORY [Suspect]
     Dates: end: 20030101

REACTIONS (1)
  - RENAL FAILURE [None]
